FAERS Safety Report 21650070 (Version 1)
Quarter: 2022Q4

REPORT INFORMATION
  Report Type: Spontaneous
  Country: US (occurrence: None)
  Receive Date: 20221123
  Receipt Date: 20221123
  Transmission Date: 20230112
  Serious: Yes (Other)
  Sender: FDA-Public Use
  Company Number: None

PATIENT
  Age: 65 Year
  Sex: Male
  Weight: 115.2 kg

DRUGS (17)
  1. GEMTESA [Suspect]
     Active Substance: VIBEGRON
     Indication: Hypertonic bladder
     Dosage: 1  TABLET ORAL ?
     Route: 048
     Dates: start: 202210, end: 20221028
  2. TRIAMCINOLONE ACETONIDE 0.1% OINT [Concomitant]
  3. MIRABEGRON [Concomitant]
     Active Substance: MIRABEGRON
  4. TADALAFIL [Concomitant]
     Active Substance: TADALAFIL
  5. KETOCONAZOLE [Concomitant]
     Active Substance: KETOCONAZOLE
  6. TAMSULOSIN [Concomitant]
     Active Substance: TAMSULOSIN
  7. ATORVASTATIN CALCIUM [Concomitant]
     Active Substance: ATORVASTATIN CALCIUM
  8. ASPIRIN [Concomitant]
     Active Substance: ASPIRIN
  9. LOSARTAN [Concomitant]
     Active Substance: LOSARTAN
  10. METOPROLOL TARTRATE [Concomitant]
     Active Substance: METOPROLOL TARTRATE
  11. AMLODIPINE BESYLATE [Concomitant]
     Active Substance: AMLODIPINE BESYLATE
  12. EMPAGLIFLOZIN [Concomitant]
     Active Substance: EMPAGLIFLOZIN
  13. LANTUS [Concomitant]
     Active Substance: INSULIN GLARGINE
  14. ASPART [Concomitant]
  15. NOVO FLEXPEN [Concomitant]
  16. CHOLECALCIF [Concomitant]
  17. VITAMINS [Concomitant]
     Active Substance: VITAMINS

REACTIONS (2)
  - Rash erythematous [None]
  - Skin exfoliation [None]

NARRATIVE: CASE EVENT DATE: 20221001
